FAERS Safety Report 4888054-X (Version None)
Quarter: 2006Q1

REPORT INFORMATION
  Report Type: 
  Country: None (occurrence: None)
  Receive Date: 20060123
  Receipt Date: 20051017
  Transmission Date: 20060701
  Serious: Yes (Hospitalization, Disabling)
  Sender: FDA-Public Use
  Company Number: US-MERCK-0510USA07506

PATIENT
  Age: 54 Year
  Sex: Female
  Weight: 68 kg

DRUGS (8)
  1. VIOXX [Suspect]
     Indication: ARTHRITIS
     Route: 048
     Dates: start: 20000101, end: 20041001
  2. VIOXX [Suspect]
     Route: 048
     Dates: start: 20000101, end: 20041001
  3. VIOXX [Suspect]
     Route: 048
     Dates: start: 20000101, end: 20041001
  4. VIOXX [Suspect]
     Route: 048
     Dates: start: 20000101, end: 20040901
  5. VIOXX [Suspect]
     Route: 048
     Dates: start: 20000101, end: 20041001
  6. VIOXX [Suspect]
     Route: 048
     Dates: start: 20030626, end: 20040601
  7. VIOXX [Suspect]
     Route: 048
     Dates: start: 20040602, end: 20041001
  8. ZESTRIL [Suspect]
     Route: 065

REACTIONS (29)
  - ACUTE MYOCARDIAL INFARCTION [None]
  - ANEURYSM [None]
  - ANHEDONIA [None]
  - BLOOD TRIGLYCERIDES INCREASED [None]
  - BUNDLE BRANCH BLOCK [None]
  - BUNDLE BRANCH BLOCK LEFT [None]
  - BURSITIS [None]
  - CARDIAC FAILURE [None]
  - CARDIAC MURMUR [None]
  - CHEST DISCOMFORT [None]
  - CORONARY ARTERY DISEASE [None]
  - EXOSTOSIS [None]
  - FEELING HOT [None]
  - HIP ARTHROPLASTY [None]
  - HYPERHIDROSIS [None]
  - HYPERTENSION [None]
  - HYPOKALAEMIA [None]
  - INTESTINAL FUNCTIONAL DISORDER [None]
  - MENTAL DISORDER [None]
  - MOUTH ULCERATION [None]
  - MUSCLE SPASMS [None]
  - MYOCARDIAL ISCHAEMIA [None]
  - NEPHROLITHIASIS [None]
  - OSTEOARTHRITIS [None]
  - PRESCRIBED OVERDOSE [None]
  - SPINAL OSTEOARTHRITIS [None]
  - VASCULAR PSEUDOANEURYSM [None]
  - VENTRICULAR DYSFUNCTION [None]
  - WEIGHT INCREASED [None]
